FAERS Safety Report 20082630 (Version 1)
Quarter: 2021Q4

REPORT INFORMATION
  Report Type: Spontaneous
  Country: DE (occurrence: DE)
  Receive Date: 20211117
  Receipt Date: 20211117
  Transmission Date: 20220303
  Serious: Yes (Hospitalization)
  Sender: FDA-Public Use
  Company Number: DE-ADRED-07101-01

PATIENT
  Age: 86 Year
  Sex: Female
  Weight: 70 kg

DRUGS (15)
  1. METOPROLOL [Suspect]
     Active Substance: METOPROLOL
     Indication: Product used for unknown indication
     Dosage: 47.5 MILLIGRAM (47.5 MG, 2-0-2-0, RETARD-TABLETTEN)
     Route: 048
  2. DIGITOXIN [Suspect]
     Active Substance: DIGITOXIN
     Indication: Product used for unknown indication
     Dosage: 0.07 MILLIGRAM, QD (1-0-0-0, TABLETTEN)
     Route: 048
  3. NALOXONE HYDROCHLORIDE\TILIDINE HYDROCHLORIDE [Concomitant]
     Active Substance: NALOXONE HYDROCHLORIDE\TILIDINE HYDROCHLORIDE
     Dosage: 4|50 MG, 0-0-1-0, RETARD-TABLETTEN
     Route: 048
  4. POTASSIUM CHLORIDE [Concomitant]
     Active Substance: POTASSIUM CHLORIDE
     Dosage: 600 MILLIGRAM (1-1-1-0, KAPSELN)
     Route: 048
  5. ATORVASTATIN [Concomitant]
     Active Substance: ATORVASTATIN
     Dosage: 40 MILLIGRAM, QD  (0-0-1-0, TABLETTEN)
     Route: 048
  6. BRINZOLAMIDE [Concomitant]
     Active Substance: BRINZOLAMIDE
     Dosage: 1 TROPFEN, 1-0-1-0, ATR
     Route: 047
  7. LATANOPROST [Concomitant]
     Active Substance: LATANOPROST
     Dosage: 1 TROPFEN, 0-0-1-0, ATR
     Route: 047
  8. VALSARTAN [Concomitant]
     Active Substance: VALSARTAN
     Dosage: 40 MILLIGRAM, QD (0.5-0-0-0, TABLETTEN)
     Route: 048
  9. CHOLECALCIFEROL [Concomitant]
     Active Substance: CHOLECALCIFEROL
     Dosage: 20000 INTERNATIONAL UNIT (NACH SCHEMA, KAPSELN)
     Route: 048
  10. TORSEMIDE [Concomitant]
     Active Substance: TORSEMIDE
     Dosage: 10 MILLIGRAM, QD ( 2-0-0-0, TABLETTEN)
     Route: 048
  11. PREDNISOLON                        /00016201/ [Concomitant]
     Dosage: 5 MILLIGRAM ( 0.5-0-0-0, TABLETTEN)
     Route: 048
  12. HYALURONIC ACID [Concomitant]
     Active Substance: HYALURONIC ACID
     Dosage: 1 TROPFEN, 6X, EDP
     Route: 047
  13. PANTOPRAZOLE [Concomitant]
     Active Substance: PANTOPRAZOLE
     Dosage: 40 MILLIGRAM, QD (1-0-0-0, RETARD-TABLETTEN)
     Route: 048
  14. METAMIZOL                          /06276701/ [Concomitant]
     Dosage: 500 MILLIGRAM (1-0-1-0, TABLETTEN)
     Route: 048
  15. APIXABAN [Concomitant]
     Active Substance: APIXABAN
     Dosage: 2.5 MILLIGRAM (1-0-1-0, TABLETTEN)
     Route: 048

REACTIONS (5)
  - General physical health deterioration [Recovering/Resolving]
  - Syncope [Recovering/Resolving]
  - Cough [Recovering/Resolving]
  - Fatigue [Recovering/Resolving]
  - Dyspnoea [Recovering/Resolving]
